FAERS Safety Report 6035185-7 (Version None)
Quarter: 2009Q1

REPORT INFORMATION
  Report Type: 
  Country: None (occurrence: None)
  Receive Date: 20090109
  Receipt Date: 20081231
  Transmission Date: 20090719
  Serious: Yes (Death, Hospitalization)
  Sender: FDA-Public Use
  Company Number: GXKR2008GB12360

PATIENT
  Age: 91 Year
  Sex: Female

DRUGS (11)
  1. TRIMETHOPRIM [Suspect]
     Indication: URINARY TRACT INFECTION
     Dosage: 200 MG, ORAL
     Route: 048
     Dates: start: 20081103, end: 20081110
  2. AMIODARONE HCL [Concomitant]
  3. ACETYLSALICYLIC ACID SRT [Concomitant]
  4. CALCICHEW D3 (CALCIUM CARBONATE, COLECALCIFEROL) [Concomitant]
  5. CIPROFLOXACIN [Concomitant]
  6. GTN (GLYCERYL TRINITRATE) [Concomitant]
  7. HYDROXOCOBALAMIN (HYDROXOCOBALAMIN) [Concomitant]
  8. ACETAMINOPHEN [Concomitant]
  9. RISEDRONIC ACID (RISEDRONIC ACID) [Concomitant]
  10. SENNA (SENNA, SENNA ALEXANDRINA) [Concomitant]
  11. SIMVASTATIN [Concomitant]

REACTIONS (3)
  - PNEUMONIA [None]
  - RASH [None]
  - TUBULOINTERSTITIAL NEPHRITIS [None]
